FAERS Safety Report 21213187 (Version 3)
Quarter: 2022Q3

REPORT INFORMATION
  Report Type: Spontaneous
  Country: JP (occurrence: JP)
  Receive Date: 20220815
  Receipt Date: 20220912
  Transmission Date: 20221026
  Serious: Yes (Disabling, Other)
  Sender: FDA-Public Use
  Company Number: JP-SCALL-2022-JP-000341

PATIENT
  Age: 80 Year
  Sex: Male

DRUGS (2)
  1. DUTASTERIDE [Suspect]
     Active Substance: DUTASTERIDE
     Indication: Prostatic specific antigen increased
     Dosage: 0.5 MG, QD
     Route: 048
  2. HARNAL [Concomitant]
     Active Substance: TAMSULOSIN HYDROCHLORIDE
     Route: 065

REACTIONS (4)
  - Anuria [Not Recovered/Not Resolved]
  - Renal failure [Not Recovered/Not Resolved]
  - Dementia [Not Recovered/Not Resolved]
  - Communication disorder [Not Recovered/Not Resolved]
